FAERS Safety Report 23703774 (Version 2)
Quarter: 2024Q3

REPORT INFORMATION
  Report Type: Spontaneous
  Country: JP (occurrence: JP)
  Receive Date: 20240403
  Receipt Date: 20240717
  Transmission Date: 20241016
  Serious: Yes (Death, Life-Threatening, Hospitalization)
  Sender: CARA THERAPEUTICS
  Company Number: JP-CARA THERAPEUTICS, INC.-2024-00183-JP

PATIENT
  Age: 90 Year
  Sex: Female
  Weight: 50.5 kg

DRUGS (9)
  1. KORSUVA [Suspect]
     Active Substance: DIFELIKEFALIN ACETATE
     Indication: Pruritus
     Dosage: 25 ?G/ (25 ?G/   )
     Route: 042
     Dates: start: 20240309, end: 20240321
  2. DARBEPOETIN ALFA [Concomitant]
     Active Substance: DARBEPOETIN ALFA
     Dosage: 120 ?G
     Route: 042
     Dates: start: 20240402
  3. PARSABIV [Concomitant]
     Active Substance: ETELCALCETIDE HYDROCHLORIDE
     Dosage: 2.5 MG/
     Route: 042
     Dates: start: 20231209, end: 20240402
  4. ACETAMINOPHEN [Concomitant]
     Active Substance: ACETAMINOPHEN
     Dosage: 400 MG/
     Route: 005
  5. ACETAMINOPHEN [Concomitant]
     Active Substance: ACETAMINOPHEN
     Dosage: 2.5 MG/
     Route: 005
     Dates: start: 20240402
  6. VONOPRAZAN FUMARATE [Concomitant]
     Active Substance: VONOPRAZAN FUMARATE
     Dosage: 10 MG/
     Route: 005
     Dates: start: 20240402
  7. WARFARIN [Concomitant]
     Active Substance: WARFARIN
     Dosage: UNK
     Route: 005
     Dates: start: 20240402
  8. SULFAMETHOXAZOLE\TRIMETHOPRIM [Concomitant]
     Active Substance: SULFAMETHOXAZOLE\TRIMETHOPRIM
     Dosage: 2 DF/
     Route: 005
     Dates: start: 20240402
  9. LINAGLIPTIN [Concomitant]
     Active Substance: LINAGLIPTIN
     Dosage: 5 MG/
     Route: 005
     Dates: start: 20240402

REACTIONS (2)
  - Hypotension [Fatal]
  - Somnolence [Fatal]

NARRATIVE: CASE EVENT DATE: 20240311
